FAERS Safety Report 8426141-X (Version None)
Quarter: 2012Q2

REPORT INFORMATION
  Report Type: 
  Country: None (occurrence: None)
  Receive Date: 20120611
  Receipt Date: 20120409
  Transmission Date: 20120825
  Serious: No
  Sender: FDA-Public Use
  Company Number: US-MYLANLABS-2012S1007559

PATIENT
  Sex: Male

DRUGS (1)
  1. GLIPIZIDE [Suspect]

REACTIONS (1)
  - WEIGHT DECREASED [None]
